FAERS Safety Report 6357017-X (Version None)
Quarter: 2009Q3

REPORT INFORMATION
  Report Type: 
  Country: None (occurrence: None)
  Receive Date: 20090915
  Receipt Date: 20090225
  Transmission Date: 20100115
  Serious: No
  Sender: FDA-Public Use
  Company Number: US-ABBOTT-07P-163-0423649-00

PATIENT
  Sex: Male
  Weight: 39.952 kg

DRUGS (2)
  1. DEPAKOTE [Suspect]
     Indication: EPILEPSY
     Route: 048
     Dates: start: 20010101
  2. DEPAKOTE [Suspect]
     Indication: CONVULSION

REACTIONS (8)
  - ANKLE FRACTURE [None]
  - CARNITINE DEFICIENCY [None]
  - CONVULSION [None]
  - FALL [None]
  - IMPAIRED HEALING [None]
  - OSTEOPOROSIS [None]
  - UPPER LIMB FRACTURE [None]
  - VITAMIN D DECREASED [None]
